FAERS Safety Report 8250560-8 (Version None)
Quarter: 2012Q2

REPORT INFORMATION
  Report Type: 
  Country: None (occurrence: None)
  Receive Date: 20120402
  Receipt Date: 20120329
  Transmission Date: 20120825
  Serious: Yes (Death, Other)
  Sender: FDA-Public Use
  Company Number: GB-ROCHE-1048672

PATIENT
  Sex: Female
  Weight: 89.075 kg

DRUGS (2)
  1. LUCENTIS [Suspect]
     Indication: PRODUCT USED FOR UNKNOWN INDICATION
     Route: 050
     Dates: start: 20090805
  2. LUCENTIS [Suspect]
     Route: 050
     Dates: start: 20100415, end: 20100415

REACTIONS (3)
  - LUNG CANCER METASTATIC [None]
  - PNEUMONIA [None]
  - ACUTE MYOCARDIAL INFARCTION [None]
